FAERS Safety Report 12040312 (Version 3)
Quarter: 2016Q2

REPORT INFORMATION
  Report Type: Report from Study
  Country: JP (occurrence: JP)
  Receive Date: 20160208
  Receipt Date: 20160406
  Transmission Date: 20160815
  Serious: Yes (Hospitalization, Disabling)
  Sender: FDA-Public Use
  Company Number: JP-PFIZER INC-2015047540

PATIENT
  Sex: Male

DRUGS (42)
  1. CELSENTRI [Suspect]
     Active Substance: MARAVIROC
     Dosage: 600 MG, DAILY
     Route: 048
     Dates: start: 20140816, end: 20141225
  2. ISCOTIN [Concomitant]
     Active Substance: ISONIAZID
     Indication: ATYPICAL MYCOBACTERIAL INFECTION
     Dosage: 300 MG, 1X/DAY
     Dates: start: 20130502, end: 20140312
  3. RIFAMPICIN [Concomitant]
     Active Substance: RIFAMPIN
     Indication: ATYPICAL MYCOBACTERIAL INFECTION
     Dosage: 600 MG, 1X/DAY
     Dates: start: 20130502, end: 20130520
  4. EBUTOL [Concomitant]
     Active Substance: ETHAMBUTOL HYDROCHLORIDE
     Indication: ATYPICAL MYCOBACTERIAL INFECTION
     Dosage: 1000 MG, 1X/DAY
     Dates: start: 20130502, end: 20140312
  5. EBUTOL [Concomitant]
     Active Substance: ETHAMBUTOL HYDROCHLORIDE
     Dosage: 750 MG, 1X/DAY
     Dates: start: 20140723, end: 20141225
  6. CRAVIT [Concomitant]
     Active Substance: LEVOFLOXACIN
     Indication: ATYPICAL MYCOBACTERIAL INFECTION
     Dosage: 500 MG, 1X/DAY
     Dates: start: 20130530, end: 20130912
  7. ONDANSETRON HYDROCHLORIDE. [Concomitant]
     Active Substance: ONDANSETRON HYDROCHLORIDE
     Indication: NAUSEA
     Dosage: 4 MG, DAILY
     Dates: start: 20130907, end: 20130918
  8. CLIDAMACIN [Concomitant]
     Active Substance: CLINDAMYCIN\CLINDAMYCIN PHOSPHATE
     Indication: CEREBRAL TOXOPLASMOSIS
     Dosage: 600 MG, 4X/DAY
     Dates: start: 20131007, end: 20131029
  9. RIFABUTIN. [Suspect]
     Active Substance: RIFABUTIN
     Dosage: 300 MG, DAILY
     Route: 048
     Dates: start: 20150102
  10. NORVIR [Suspect]
     Active Substance: RITONAVIR
     Indication: HIV INFECTION
     Dosage: 100 MG, DAILY
     Dates: start: 20130711, end: 20130929
  11. ZOFRAN [Concomitant]
     Active Substance: ONDANSETRON HYDROCHLORIDE
     Indication: NAUSEA
     Dosage: 4 MG, 2X/DAY
     Dates: start: 20130905, end: 20130906
  12. KANAMYCIN [Concomitant]
     Active Substance: KANAMYCIN\KANAMYCIN A SULFATE
     Dosage: 20 ML, 4X/DAY
     Dates: start: 20150102
  13. PREDONINE [Concomitant]
     Active Substance: PREDNISOLONE\PREDNISOLONE ACETATE\PREDNISOLONE SODIUM SUCCINATE
     Dosage: UNK, 1X/DAY
     Dates: start: 20150102, end: 20150113
  14. TRUVADA [Suspect]
     Active Substance: EMTRICITABINE\TENOFOVIR DISOPROXIL FUMARATE
     Dosage: 1 DF, DAILY
     Dates: start: 20141211, end: 20141225
  15. LEXIVA [Suspect]
     Active Substance: FOSAMPRENAVIR CALCIUM
     Dosage: 1400 MG, 2X/DAY
     Route: 048
     Dates: start: 20140317, end: 20140624
  16. BENAMBAX [Concomitant]
     Active Substance: PENTAMIDINE
     Indication: PROPHYLAXIS
     Dosage: 300 MG, 1X/DAY
     Dates: start: 20130521, end: 20130924
  17. KANAMYCIN [Concomitant]
     Active Substance: KANAMYCIN\KANAMYCIN A SULFATE
     Dosage: 20 ML, 4X/DAY
     Dates: start: 20140104, end: 20141225
  18. TRUVADA [Suspect]
     Active Substance: EMTRICITABINE\TENOFOVIR DISOPROXIL FUMARATE
     Dosage: 1 DF, DAILY
     Dates: start: 20131010, end: 20140312
  19. CELSENTRI [Suspect]
     Active Substance: MARAVIROC
     Dosage: 600 MG, DAILY
     Route: 048
     Dates: start: 20150102, end: 20150121
  20. CLARITHROMYCIN. [Concomitant]
     Active Substance: CLARITHROMYCIN
     Indication: ATYPICAL MYCOBACTERIAL INFECTION
     Dosage: 400 MG, 2X/DAY
     Dates: start: 20130515, end: 20140312
  21. TAKEPRON [Concomitant]
     Active Substance: LANSOPRAZOLE
     Indication: ATYPICAL MYCOBACTERIAL INFECTION
     Dosage: 15 MG, 1X/DAY
     Dates: start: 20130619, end: 20140312
  22. EBUTOL [Concomitant]
     Active Substance: ETHAMBUTOL HYDROCHLORIDE
     Dosage: 750 MG, 1X/DAY
     Dates: start: 20150102
  23. ONDANSETRON HYDROCHLORIDE. [Concomitant]
     Active Substance: ONDANSETRON HYDROCHLORIDE
     Indication: VOMITING
  24. PREDONINE [Concomitant]
     Active Substance: PREDNISOLONE\PREDNISOLONE ACETATE\PREDNISOLONE SODIUM SUCCINATE
     Dosage: UNK, 1X/DAY
     Dates: start: 20140920, end: 20141225
  25. RIFABUTIN. [Suspect]
     Active Substance: RIFABUTIN
     Dosage: 150 MG, 1X/DAY
     Route: 048
     Dates: start: 20140407, end: 20140624
  26. TRUVADA [Suspect]
     Active Substance: EMTRICITABINE\TENOFOVIR DISOPROXIL FUMARATE
     Indication: HIV INFECTION
     Dosage: 1 DF, DAILY
     Route: 048
     Dates: start: 20130711, end: 20130929
  27. PREZISTANAIVE [Suspect]
     Active Substance: DARUNAVIR
     Indication: HIV INFECTION
     Dosage: 800 MG, 1X/DAY
     Dates: start: 20130711, end: 20130929
  28. ZIAGEN [Suspect]
     Active Substance: ABACAVIR SULFATE
     Dosage: 300 MG, 2X/DAY
     Route: 048
     Dates: start: 20150123
  29. VICCLOX [Concomitant]
     Active Substance: ACYCLOVIR SODIUM
     Indication: HERPES ZOSTER
     Dosage: 500 MG, 3X/DAY
     Dates: start: 20130830, end: 20130909
  30. PYDOXAL [Concomitant]
     Active Substance: PYRIDOXAL
     Indication: PROPHYLAXIS
     Dosage: 40-60 MG, 1X/DAY
     Dates: start: 20130502, end: 20131031
  31. FULCALIQ 1-3 [Concomitant]
     Indication: FEEDING DISORDER
     Dosage: UNK (903-1103 ML/DAY) , DAILY
     Dates: start: 20131001, end: 20131012
  32. TRUVADA [Suspect]
     Active Substance: EMTRICITABINE\TENOFOVIR DISOPROXIL FUMARATE
     Dosage: 1 DF, DAILY
     Dates: start: 20140317, end: 20141021
  33. TIVICAY [Suspect]
     Active Substance: DOLUTEGRAVIR SODIUM
     Dosage: 50 MG, DAILY
     Route: 048
     Dates: start: 20140625, end: 20141225
  34. TIVICAY [Suspect]
     Active Substance: DOLUTEGRAVIR SODIUM
     Dosage: 50 MG, DAILY
     Route: 048
     Dates: start: 20150102
  35. VALTREX [Concomitant]
     Active Substance: VALACYCLOVIR HYDROCHLORIDE
     Indication: HERPES ZOSTER
     Dosage: 1000 MG, 3X/DAY
     Dates: start: 20130828, end: 20130829
  36. PYDOXAL [Concomitant]
     Active Substance: PYRIDOXAL
     Dosage: UNK
  37. ZOFRAN [Concomitant]
     Active Substance: ONDANSETRON HYDROCHLORIDE
     Indication: VOMITING
  38. RIFABUTIN. [Suspect]
     Active Substance: RIFABUTIN
     Indication: ATYPICAL MYCOBACTERIAL INFECTION
     Dosage: 300 MG, 1X/DAY
     Route: 048
     Dates: start: 20130521, end: 20140312
  39. RIFABUTIN. [Suspect]
     Active Substance: RIFABUTIN
     Dosage: 300 MG, 1X/DAY
     Route: 048
     Dates: start: 20140625, end: 20141225
  40. EPZICOM [Suspect]
     Active Substance: ABACAVIR SULFATE\LAMIVUDINE
     Dosage: 1 DF, DAILY
     Route: 048
     Dates: start: 20141022, end: 20141210
  41. TRUVADA [Suspect]
     Active Substance: EMTRICITABINE\TENOFOVIR DISOPROXIL FUMARATE
     Dosage: 1 DF, DAILY
     Dates: start: 20150102, end: 20150122
  42. EPIVIR [Suspect]
     Active Substance: LAMIVUDINE
     Dosage: 150 MG, 2X/DAY
     Route: 048
     Dates: start: 20150123

REACTIONS (7)
  - Nausea [Not Recovered/Not Resolved]
  - Mycobacterium avium complex immune restoration disease [Not Recovered/Not Resolved]
  - Necrotising retinitis [Not Recovered/Not Resolved]
  - Vomiting [Not Recovered/Not Resolved]
  - Depressive symptom [Not Recovered/Not Resolved]
  - Spinal compression fracture [Not Recovered/Not Resolved]
  - Cerebral toxoplasmosis [Not Recovered/Not Resolved]

NARRATIVE: CASE EVENT DATE: 201308
